FAERS Safety Report 13551978 (Version 1)
Quarter: 2017Q2

REPORT INFORMATION
  Report Type: Spontaneous
  Country: GB (occurrence: GB)
  Receive Date: 20170516
  Receipt Date: 20170516
  Transmission Date: 20170830
  Serious: Yes (Other)
  Sender: FDA-Public Use
  Company Number: PHFR2017GB003456

PATIENT
  Sex: Male

DRUGS (2)
  1. ENTRESTO [Suspect]
     Active Substance: SACUBITRIL\VALSARTAN
     Indication: PRODUCT USED FOR UNKNOWN INDICATION
     Dosage: 100 MG (49/51 MG), UNK
     Route: 065
  2. ENTRESTO [Suspect]
     Active Substance: SACUBITRIL\VALSARTAN
     Dosage: 50 MG, (24/26 MG) QD
     Route: 065

REACTIONS (6)
  - Myalgia [Unknown]
  - Arthralgia [Unknown]
  - Fatigue [Unknown]
  - Diarrhoea [Unknown]
  - Prescribed underdose [Unknown]
  - Type 2 diabetes mellitus [Unknown]
